FAERS Safety Report 25017551 (Version 1)
Quarter: 2025Q1

REPORT INFORMATION
  Report Type: Spontaneous
  Country: CN (occurrence: CN)
  Receive Date: 20250227
  Receipt Date: 20250227
  Transmission Date: 20250409
  Serious: Yes (Other)
  Sender: ROCHE
  Company Number: CN-ROCHE-10000216309

PATIENT
  Age: 67 Year
  Sex: Female
  Weight: 55 kg

DRUGS (2)
  1. BALOXAVIR MARBOXIL [Suspect]
     Active Substance: BALOXAVIR MARBOXIL
     Indication: Influenza
     Route: 048
     Dates: start: 20250110, end: 20250110
  2. METFORMIN [Concomitant]
     Active Substance: METFORMIN HYDROCHLORIDE
     Indication: Hypoglycaemia
     Route: 048
     Dates: start: 20230201, end: 20250121

REACTIONS (7)
  - Drug-induced liver injury [Recovered/Resolved]
  - Vomiting [Recovered/Resolved]
  - Diarrhoea [Recovered/Resolved]
  - Nausea [Recovered/Resolved]
  - Decreased appetite [Recovered/Resolved]
  - Dizziness [Recovered/Resolved]
  - Asthenia [Recovered/Resolved]

NARRATIVE: CASE EVENT DATE: 20250116
